FAERS Safety Report 25752869 (Version 3)
Quarter: 2025Q4

REPORT INFORMATION
  Report Type: Report from Study
  Country: CA (occurrence: CA)
  Receive Date: 20250902
  Receipt Date: 20251006
  Transmission Date: 20260117
  Serious: Yes (Other)
  Sender: HLS THERAPEUTICS
  Company Number: CA-HLS-202502271

PATIENT
  Age: 43 Year
  Sex: Female

DRUGS (15)
  1. CLOZARIL [Suspect]
     Active Substance: CLOZAPINE
     Indication: Product used for unknown indication
     Route: 048
     Dates: start: 20010718
  2. CLOZARIL [Suspect]
     Active Substance: CLOZAPINE
     Indication: Product used for unknown indication
     Route: 048
     Dates: start: 20010718
  3. EFFEXOR XR [Concomitant]
     Active Substance: VENLAFAXINE HYDROCHLORIDE
     Route: 048
  4. PROCHLORPERAZINE [Concomitant]
     Active Substance: PROCHLORPERAZINE
     Indication: Nausea
     Dosage: IF NEEDED
     Route: 048
  5. PROCHLORPERAZINE [Concomitant]
     Active Substance: PROCHLORPERAZINE
     Indication: Vomiting
     Dosage: IF NEEDED
     Route: 048
  6. IBRANCE [Concomitant]
     Active Substance: PALBOCICLIB
     Dosage: TAKE 1 TABLET (125 MG) BY MOUTH 1 (ONE) TIME EACH DAY. FOLLOWED BY 7 DAYS OFF THERAPY
     Route: 048
  7. zvprexa [Concomitant]
     Indication: Prophylaxis of nausea and vomiting
     Dosage: NIGHT OF CHEMO AND 2 MORE NIGHTS. REFILL FOR CHEMO CYCLES 1-4
     Route: 048
  8. FISH OIL [Concomitant]
     Active Substance: FISH OIL
     Dosage: TAKE 1 CAPSULE
     Route: 048
  9. VITAMIN B12 [Concomitant]
     Active Substance: CYANOCOBALAMIN
     Route: 048
  10. CELEXA [Concomitant]
     Active Substance: CITALOPRAM HYDROBROMIDE
     Route: 048
  11. VITAMIN D3 [Concomitant]
     Active Substance: CHOLECALCIFEROL
     Dosage: 1,000 UNIT (25 MCG)
     Route: 048
  12. TYLENOL WITH CODEINE [Concomitant]
     Active Substance: ACETAMINOPHEN\CODEINE PHOSPHATE
     Indication: Pain
     Dosage: 300-30-15 MG EVERY 4 (FOUR) HOURS IF NEEDED.
     Route: 048
  13. GOSERELIN ACETATE [Concomitant]
     Active Substance: GOSERELIN ACETATE
     Dosage: 10.8 MG INJECTION, UNDER THE SKIN EVERY 12  WEEKS. TAKE OTC VIT D 1000 IU DAILY AND CALCIUM (EG TUMS
     Route: 058
     Dates: start: 202507
  14. palbodclib [Concomitant]
     Dosage: 3 WEEKS ON 1 WEEK OFF CYCLES
     Route: 048
     Dates: start: 20250801
  15. FEMARA [Concomitant]
     Active Substance: LETROZOLE
     Dosage: TAKE CONCOMITANT OTC VITAMIN D 1000 JU DAILY AND CALCIUM/TUMS 500 MG DAILY {AWAY FROM OTHER PILLS)
     Route: 048
     Dates: start: 20250801

REACTIONS (4)
  - Exposure to communicable disease [Unknown]
  - Breast cancer female [Unknown]
  - Lung neoplasm malignant [Unknown]
  - Metastatic lymphoma [Unknown]
